FAERS Safety Report 7310482-3 (Version None)
Quarter: 2011Q1

REPORT INFORMATION
  Report Type: 
  Country: None (occurrence: None)
  Receive Date: 20110224
  Receipt Date: 20101007
  Transmission Date: 20110831
  Serious: No
  Sender: FDA-Public Use
  Company Number: US-BRISTOL-MYERS SQUIBB COMPANY-15324114

PATIENT
  Sex: Female

DRUGS (2)
  1. IMODIUM [Suspect]
  2. METFORMIN HCL [Suspect]
     Dosage: 1 DF = 500 UNIT NOS

REACTIONS (4)
  - DIARRHOEA [None]
  - URINE ODOUR ABNORMAL [None]
  - ABDOMINAL PAIN UPPER [None]
  - BLOOD GLUCOSE INCREASED [None]
